FAERS Safety Report 8792980 (Version 2)
Quarter: 2012Q4

REPORT INFORMATION
  Report Type: 
  Country: US (occurrence: US)
  Receive Date: 20120918
  Receipt Date: 20121010
  Transmission Date: 20130627
  Serious: Yes (Hospitalization)
  Sender: FDA-Public Use
  Company Number: US-ACTELION-A-US2012-71250

PATIENT
  Age: 72 Year
  Sex: Female

DRUGS (3)
  1. VELETRI [Suspect]
     Indication: PULMONARY ARTERIAL HYPERTENSION
     Dosage: 20 ng/kg, per min
     Route: 042
     Dates: start: 20120313
  2. SILDENAFIL [Concomitant]
  3. ASPIRIN [Concomitant]

REACTIONS (2)
  - Hyperthyroidism [Unknown]
  - Thyroidectomy [Unknown]
